FAERS Safety Report 5621134-X (Version None)
Quarter: 2008Q1

REPORT INFORMATION
  Report Type: 
  Country: None (occurrence: None)
  Receive Date: 20080114
  Receipt Date: 20061201
  Transmission Date: 20080703
  Serious: Yes (Hospitalization)
  Sender: FDA-Public Use
  Company Number: A03200607167

PATIENT
  Age: 63 Year
  Sex: Male
  Weight: 90.7 kg

DRUGS (5)
  1. PLAVIX [Suspect]
     Indication: STENT PLACEMENT
     Dosage: 75 MG QD - ORAL
     Route: 048
     Dates: start: 20050601
  2. ATORVASTATIN CALCIUM [Concomitant]
  3. FERROUS SULFATE [Concomitant]
  4. L-METHYLFOLATE + PYRIDOXAL 5' -PHOSPHATE + METHYLCOBALAMIN [Concomitant]
  5. AZATHIOPRINE [Concomitant]

REACTIONS (5)
  - CROHN'S DISEASE [None]
  - HAEMOGLOBIN DECREASED [None]
  - MELAENA [None]
  - RECTAL HAEMORRHAGE [None]
  - STOMACH DISCOMFORT [None]
